FAERS Safety Report 15965849 (Version 3)
Quarter: 2019Q2

REPORT INFORMATION
  Report Type: Spontaneous
  Country: US (occurrence: US)
  Receive Date: 20190215
  Receipt Date: 20190509
  Transmission Date: 20190711
  Serious: No
  Sender: FDA-Public Use
  Company Number: US-PFIZER INC-2019061826

PATIENT
  Age: 54 Year
  Sex: Female
  Weight: 54.43 kg

DRUGS (2)
  1. EUCRISA [Suspect]
     Active Substance: CRISABOROLE
     Indication: HAIR GROWTH ABNORMAL
     Dosage: UNK, 2X/DAY (TOPICALLY TWICE DAILY TO THE LEFT ANTERIOR SCALP)
     Route: 061
     Dates: start: 201901
  2. EUCRISA [Suspect]
     Active Substance: CRISABOROLE
     Indication: ALOPECIA AREATA

REACTIONS (4)
  - Drug effective for unapproved indication [Unknown]
  - Application site pain [Unknown]
  - Eye disorder [Unknown]
  - Off label use [Unknown]

NARRATIVE: CASE EVENT DATE: 201901
